FAERS Safety Report 8784354 (Version 3)
Quarter: 2014Q4

REPORT INFORMATION
  Report Type: Spontaneous
  Country: US (occurrence: US)
  Receive Date: 20120913
  Receipt Date: 20141015
  Transmission Date: 20150529
  Serious: Yes (Hospitalization, Other)
  Sender: FDA-Public Use
  Company Number: US-009507513-2010SP005950

PATIENT
  Sex: Female
  Weight: 113.4 kg

DRUGS (4)
  1. PROVENTIL [Concomitant]
     Active Substance: ALBUTEROL
     Indication: PRODUCT USED FOR UNKNOWN INDICATION
     Dosage: UNK UNK, PRN
  2. FLOVENT [Concomitant]
     Active Substance: FLUTICASONE PROPIONATE
     Indication: RESPIRATORY DISORDER
     Route: 055
     Dates: start: 1994
  3. METOPROLOL [Concomitant]
     Active Substance: METOPROLOL
     Indication: HYPERTENSION
     Dates: start: 2000
  4. NUVARING [Suspect]
     Active Substance: ETHINYL ESTRADIOL\ETONOGESTREL
     Indication: CONTRACEPTION
     Route: 067
     Dates: start: 20080201, end: 20080303

REACTIONS (13)
  - Oesophageal spasm [Unknown]
  - Dyspnoea [Unknown]
  - Vitamin D deficiency [Recovering/Resolving]
  - Anxiety [Unknown]
  - Dysmenorrhoea [Not Recovered/Not Resolved]
  - Pulmonary embolism [Unknown]
  - Microcytic anaemia [Not Recovered/Not Resolved]
  - Costochondritis [Unknown]
  - Deep vein thrombosis [Not Recovered/Not Resolved]
  - Chest discomfort [Unknown]
  - Gastrooesophageal reflux disease [Recovering/Resolving]
  - Panic attack [Unknown]
  - Dysphagia [Unknown]

NARRATIVE: CASE EVENT DATE: 20080301
